FAERS Safety Report 6743365-8 (Version None)
Quarter: 2010Q2

REPORT INFORMATION
  Report Type: 
  Country: None (occurrence: None)
  Receive Date: 20100527
  Receipt Date: 20100524
  Transmission Date: 20101027
  Serious: Yes (Hospitalization)
  Sender: FDA-Public Use
  Company Number: US-BRISTOL-MYERS SQUIBB COMPANY-15118649

PATIENT
  Age: 78 Year
  Sex: Female

DRUGS (7)
  1. COUMADIN [Suspect]
     Dosage: 1 DF= 6MG AND 7MG
  2. MULTAQ [Suspect]
     Indication: ATRIAL FIBRILLATION
  3. METOPROLOL TARTRATE [Concomitant]
  4. DIGOXIN [Concomitant]
  5. LOTREL [Concomitant]
  6. IMDUR [Concomitant]
  7. LIPITOR [Concomitant]

REACTIONS (3)
  - DECREASED APPETITE [None]
  - INTERNATIONAL NORMALISED RATIO INCREASED [None]
  - NAUSEA [None]
